FAERS Safety Report 25591843 (Version 1)
Quarter: 2025Q3

REPORT INFORMATION
  Report Type: Report from Study
  Country: US (occurrence: US)
  Receive Date: 20250722
  Receipt Date: 20250722
  Transmission Date: 20251021
  Serious: No
  Sender: VANDA PHARMACEUTICALS
  Company Number: US-VANDA PHARMACEUTICALS, INC-2025TASUS007558

PATIENT
  Sex: Male
  Weight: 18.957 kg

DRUGS (3)
  1. HETLIOZ LQ [Suspect]
     Active Substance: TASIMELTEON
     Indication: Smith-Magenis syndrome
     Route: 048
     Dates: start: 20241120
  2. HETLIOZ LQ [Suspect]
     Active Substance: TASIMELTEON
     Dosage: 3 MILLILITER, QHS (12 MG WITHOUT FOOD)
     Route: 048
     Dates: start: 202503
  3. VALERIAN [Suspect]
     Active Substance: VALERIAN
     Indication: Middle insomnia

REACTIONS (4)
  - Poor quality sleep [Not Recovered/Not Resolved]
  - Terminal insomnia [Not Recovered/Not Resolved]
  - Irritability [Not Recovered/Not Resolved]
  - Secretion discharge [Not Recovered/Not Resolved]
